FAERS Safety Report 15504906 (Version 1)
Quarter: 2018Q4

REPORT INFORMATION
  Report Type: Spontaneous
  Country: US (occurrence: US)
  Receive Date: 20181016
  Receipt Date: 20181016
  Transmission Date: 20190205
  Serious: No
  Sender: FDA-Public Use
  Company Number: US-SA-2018SA284411

PATIENT
  Sex: Male

DRUGS (4)
  1. TRIAMCINOLON [TRIAMCINOLONE] [Concomitant]
  2. VYVANSE [Concomitant]
     Active Substance: LISDEXAMFETAMINE DIMESYLATE
  3. VEREGEN [Concomitant]
     Active Substance: SINECATECHINS
  4. DUPIXENT [Suspect]
     Active Substance: DUPILUMAB
     Indication: DERMATITIS ATOPIC
     Dosage: 300 MG, QOW
     Route: 058
     Dates: start: 20170828

REACTIONS (1)
  - Alopecia [Not Recovered/Not Resolved]
